FAERS Safety Report 6171599-2 (Version None)
Quarter: 2009Q2

REPORT INFORMATION
  Report Type: 
  Country: None (occurrence: None)
  Receive Date: 20090424
  Receipt Date: 20090120
  Transmission Date: 20091009
  Serious: No
  Sender: FDA-Public Use
  Company Number: PRA1-2008-00032

PATIENT
  Age: 16 Year
  Sex: Female
  Weight: 61.7 kg

DRUGS (3)
  1. LISDEXAMFETAMINE DIMESYLATE VS PLACEBO(CODE NOT BROKEN) CAPSULE [Suspect]
     Indication: ATTENTION DEFICIT/HYPERACTIVITY DISORDER
     Dosage: 1X/DAY: QD, ORAL
     Route: 048
     Dates: start: 20081128, end: 20081219
  2. ORTHO TRI-CYCLEN LO [Concomitant]
  3. CEFPROZIL (CEFPROZIL) [Concomitant]

REACTIONS (1)
  - PREGNANCY [None]
